FAERS Safety Report 7443561-0 (Version None)
Quarter: 2011Q2

REPORT INFORMATION
  Report Type: 
  Country: None (occurrence: None)
  Receive Date: 20110428
  Receipt Date: 20110421
  Transmission Date: 20111010
  Serious: Yes (Death)
  Sender: FDA-Public Use
  Company Number: SE-GENENTECH-317335

PATIENT
  Age: 80 Year
  Sex: Female

DRUGS (3)
  1. IMUREL [Concomitant]
     Dosage: UNK
     Route: 065
  2. MABTHERA [Suspect]
     Indication: RHEUMATOID ARTHRITIS
     Dosage: UNK
     Route: 042
     Dates: start: 20080305, end: 20090209
  3. PREDNISOLONE [Concomitant]
     Dosage: UNK
     Route: 065

REACTIONS (1)
  - PULMONARY EMBOLISM [None]
